FAERS Safety Report 5600113-2 (Version None)
Quarter: 2008Q1

REPORT INFORMATION
  Report Type: 
  Country: None (occurrence: None)
  Receive Date: 20080123
  Receipt Date: 20080118
  Transmission Date: 20080703
  Serious: Yes (Other)
  Sender: FDA-Public Use
  Company Number: B0498895A

PATIENT
  Age: 49 Year
  Sex: Female

DRUGS (8)
  1. SERETIDE [Suspect]
     Indication: ASTHMA
     Dosage: 250MCG TWICE PER DAY
     Route: 055
     Dates: start: 20071109, end: 20071110
  2. HOKUNALIN [Suspect]
     Indication: BRONCHITIS
     Dosage: 2MG PER DAY
     Route: 062
     Dates: start: 20071105, end: 20071112
  3. MUCOSOLVAN [Concomitant]
     Indication: BRONCHITIS
     Dosage: 45MG PER DAY
     Route: 048
     Dates: start: 20071109, end: 20071112
  4. KLARICID [Concomitant]
     Indication: BRONCHITIS
     Dosage: 400MG PER DAY
     Route: 048
  5. CODEINE PHOSPHATE [Concomitant]
     Indication: BRONCHITIS
     Route: 048
     Dates: start: 20071105, end: 20071112
  6. MUCODYNE [Concomitant]
     Indication: BRONCHITIS
     Dosage: 1500MG PER DAY
     Route: 048
     Dates: start: 20071105, end: 20071208
  7. DASEN [Concomitant]
     Indication: BRONCHITIS
     Dosage: 30MG PER DAY
     Route: 048
     Dates: start: 20071105, end: 20071112
  8. MINOMYCIN [Concomitant]
     Indication: BRONCHITIS
     Dosage: 200MG PER DAY
     Route: 042
     Dates: start: 20071109, end: 20071122

REACTIONS (5)
  - CHOKING SENSATION [None]
  - COUGH [None]
  - DEPRESSED LEVEL OF CONSCIOUSNESS [None]
  - DIZZINESS [None]
  - FEELING ABNORMAL [None]
